FAERS Safety Report 4993477-4 (Version None)
Quarter: 2006Q2

REPORT INFORMATION
  Report Type: 
  Country: None (occurrence: None)
  Receive Date: 20060504
  Receipt Date: 20060504
  Transmission Date: 20061013
  Serious: Yes (Hospitalization)
  Sender: FDA-Public Use
  Company Number: None

PATIENT
  Age: 74 Year
  Sex: Male

DRUGS (10)
  1. IMMUNE GLOBULIN (HUMAN) [Suspect]
     Indication: BONE MARROW FAILURE
     Dosage: INFUSION 2880 MG IV
     Route: 042
     Dates: start: 20060206, end: 20060212
  2. IMMUNE GLOBULIN (HUMAN) [Suspect]
     Indication: MYELODYSPLASTIC SYNDROME
     Dosage: INFUSION 2880 MG IV
     Route: 042
     Dates: start: 20060206, end: 20060212
  3. LASIX [Concomitant]
  4. FESO4 [Concomitant]
  5. NEUPOGEN [Concomitant]
  6. EPO [Concomitant]
  7. TRAVOPROST [Concomitant]
  8. MONOPRIL [Concomitant]
  9. HYDROCHLOROTHIAZIDE [Concomitant]
  10. COREG [Concomitant]

REACTIONS (5)
  - CHILLS [None]
  - CONDITION AGGRAVATED [None]
  - HYPOTENSION [None]
  - LEUKOPENIA [None]
  - PANCYTOPENIA [None]
